FAERS Safety Report 8586392-0 (Version None)
Quarter: 2012Q3

REPORT INFORMATION
  Report Type: 
  Country: None (occurrence: None)
  Receive Date: 20120810
  Receipt Date: 20120806
  Transmission Date: 20120928
  Serious: Yes (Other)
  Sender: FDA-Public Use
  Company Number: US-PFIZER INC-2012167232

PATIENT
  Sex: Female

DRUGS (1)
  1. DETROL LA [Suspect]
     Dosage: 4 MG, UNK

REACTIONS (4)
  - BACK DISORDER [None]
  - DRUG INEFFECTIVE [None]
  - URINARY TRACT INFECTION [None]
  - URINARY TRACT DISORDER [None]
